FAERS Safety Report 6800868-5 (Version None)
Quarter: 2010Q2

REPORT INFORMATION
  Report Type: 
  Country: None (occurrence: None)
  Receive Date: 20100629
  Receipt Date: 20100616
  Transmission Date: 20101027
  Serious: Yes (Hospitalization, Other)
  Sender: FDA-Public Use
  Company Number: AT-PFIZER INC-2009305903

PATIENT
  Age: 14 Year
  Sex: Female
  Weight: 47.4 kg

DRUGS (4)
  1. SUTENT [Suspect]
     Indication: SARCOMA
     Dosage: 37.5 MG, 1X/DAY
     Route: 048
     Dates: start: 20091113, end: 20091127
  2. THALIDOMID [Concomitant]
     Indication: ANTIANGIOGENIC THERAPY
     Dosage: 150 MG, 1X/DAY
     Route: 048
  3. PEG-INTRON [Concomitant]
     Dosage: 40 UG, WEEKLY
  4. ZOVIRAX [Concomitant]
     Indication: ORAL HERPES
     Dosage: 800 MG, 3X/DAY

REACTIONS (1)
  - SKIN NECROSIS [None]
